FAERS Safety Report 12039237 (Version 1)
Quarter: 2016Q1

REPORT INFORMATION
  Report Type: Spontaneous
  Country: US (occurrence: None)
  Receive Date: 20160205
  Receipt Date: 20160205
  Transmission Date: 20160526
  Serious: Yes (Hospitalization)
  Sender: FDA-Public Use
  Company Number: None

PATIENT
  Age: 28 Year
  Sex: Male
  Weight: 105.7 kg

DRUGS (12)
  1. POTASSIUM CHLORIDE. [Concomitant]
     Active Substance: POTASSIUM CHLORIDE
  2. ALBUTEROL. [Concomitant]
     Active Substance: ALBUTEROL
  3. FENTANYL. [Concomitant]
     Active Substance: FENTANYL
  4. PRISMASOL [Concomitant]
     Active Substance: ANHYDROUS DEXTROSE\LACTIC ACID\MAGNESIUM CHLORIDE\POTASSIUM CHLORIDE\SODIUM BICARBONATE\SODIUM CHLORIDE
  5. DIPRIVAN [Suspect]
     Active Substance: PROPOFOL
     Dosage: 200 MCG/KG/MIN (*105.7 KG) CONTINUOUS 126.8ML/HR INTRAVENOUS
     Route: 042
     Dates: start: 20150807, end: 20150809
  6. POTASSIUM PHOSPHATE [Concomitant]
     Active Substance: POTASSIUM PHOSPHATE
  7. ESMOLOL [Concomitant]
     Active Substance: ESMOLOL HYDROCHLORIDE
  8. HYDRALAZINE [Concomitant]
     Active Substance: HYDRALAZINE HYDROCHLORIDE
  9. ACETYLCYSTEINE. [Concomitant]
     Active Substance: ACETYLCYSTEINE
  10. KETAMINE [Concomitant]
     Active Substance: KETAMINE
  11. METOLAZONE. [Concomitant]
     Active Substance: METOLAZONE
  12. CEFEPIME [Concomitant]
     Active Substance: CEFEPIME HYDROCHLORIDE

REACTIONS (6)
  - Ventricular tachycardia [None]
  - Condition aggravated [None]
  - Renal failure [None]
  - Blood triglycerides increased [None]
  - Lactic acidosis [None]
  - Propofol infusion syndrome [None]

NARRATIVE: CASE EVENT DATE: 20150807
